FAERS Safety Report 8238209-1 (Version None)
Quarter: 2012Q1

REPORT INFORMATION
  Report Type: 
  Country: None (occurrence: None)
  Receive Date: 20120327
  Receipt Date: 20120322
  Transmission Date: 20120608
  Serious: Yes (Other)
  Sender: FDA-Public Use
  Company Number: NL-ROCHE-1051845

PATIENT
  Age: 77 Year
  Sex: Female

DRUGS (2)
  1. XELODA [Suspect]
     Indication: METASTATIC GASTRIC CANCER
     Route: 048
  2. UFT [Concomitant]
     Route: 065

REACTIONS (1)
  - SKIN REACTION [None]
